FAERS Safety Report 6180207-6 (Version None)
Quarter: 2009Q2

REPORT INFORMATION
  Report Type: 
  Country: None (occurrence: None)
  Receive Date: 20090505
  Receipt Date: 20090429
  Transmission Date: 20091009
  Serious: No
  Sender: FDA-Public Use
  Company Number: GB-ABBOTT-09P-167-0563659-00

PATIENT
  Sex: Female

DRUGS (5)
  1. HUMIRA [Suspect]
     Indication: CROHN'S DISEASE
     Route: 058
     Dates: start: 20080401
  2. HUMIRA [Suspect]
     Route: 058
     Dates: start: 20080401, end: 20080501
  3. PREDNISOLONE [Concomitant]
     Indication: CROHN'S DISEASE
  4. ADCAL D3 [Concomitant]
     Indication: CROHN'S DISEASE
  5. OMEPRAZOLE [Concomitant]
     Indication: CROHN'S DISEASE

REACTIONS (6)
  - HAEMATURIA [None]
  - INJECTION SITE ERYTHEMA [None]
  - INJECTION SITE REACTION [None]
  - MOUTH ULCERATION [None]
  - MYALGIA [None]
  - PRURITUS [None]
